FAERS Safety Report 24960891 (Version 1)
Quarter: 2025Q1

REPORT INFORMATION
  Report Type: Spontaneous
  Country: US (occurrence: US)
  Receive Date: 20250212
  Receipt Date: 20250212
  Transmission Date: 20250408
  Serious: No
  Sender: PFIZER
  Company Number: US-PFIZER INC-PV202500015053

PATIENT
  Age: 55 Year
  Sex: Female

DRUGS (1)
  1. ESTRING [Suspect]
     Active Substance: ESTRADIOL
     Dosage: 7.5 UG, EVERY 3 MONTHS
     Route: 067

REACTIONS (16)
  - Intrusive thoughts [Unknown]
  - Flashback [Unknown]
  - Nightmare [Unknown]
  - Post-traumatic stress disorder [Unknown]
  - Muscle tightness [Unknown]
  - Irritability [Unknown]
  - Disturbance in attention [Unknown]
  - Hypervigilance [Unknown]
  - Dissociation [Unknown]
  - Sense of a foreshortened future [Unknown]
  - Memory impairment [Unknown]
  - Respiratory rate increased [Unknown]
  - Initial insomnia [Unknown]
  - Middle insomnia [Unknown]
  - Nausea [Unknown]
  - Dizziness [Unknown]
